FAERS Safety Report 16754016 (Version 3)
Quarter: 2019Q3

REPORT INFORMATION
  Report Type: Spontaneous
  Country: US (occurrence: US)
  Receive Date: 20190829
  Receipt Date: 20190909
  Transmission Date: 20191005
  Serious: Yes (Other)
  Sender: FDA-Public Use
  Company Number: US-PFIZER INC-2019368295

PATIENT
  Age: 63 Year

DRUGS (2)
  1. CLEOCIN [Suspect]
     Active Substance: CLINDAMYCIN PHOSPHATE
     Indication: RASH
     Dosage: UNK
     Route: 061
  2. CLINDAMYCIN PHOSPHATE. [Suspect]
     Active Substance: CLINDAMYCIN PHOSPHATE
     Indication: RASH
     Dosage: UNK
     Route: 061

REACTIONS (3)
  - Neoplasm malignant [Unknown]
  - Suicidal ideation [Unknown]
  - Cerebrovascular accident [Unknown]
